FAERS Safety Report 8344515-2 (Version None)
Quarter: 2012Q2

REPORT INFORMATION
  Report Type: 
  Country: None (occurrence: None)
  Receive Date: 20120508
  Receipt Date: 20120504
  Transmission Date: 20120825
  Serious: Yes (Other)
  Sender: FDA-Public Use
  Company Number: DE-AMGEN-DEUSP2011069554

PATIENT
  Age: 68 Year
  Sex: Female

DRUGS (5)
  1. ARANESP [Suspect]
  2. ARANESP [Suspect]
     Dosage: 150 MUG, UNK
     Dates: start: 20111117, end: 20111117
  3. ARANESP [Suspect]
     Indication: ANAEMIA
     Dosage: 150 MUG, UNK
  4. ARANESP [Suspect]
  5. ARANESP [Suspect]
     Dosage: 150 MUG, UNK
     Dates: start: 20111124, end: 20111124

REACTIONS (2)
  - GASTRIC HAEMORRHAGE [None]
  - ASTHENIA [None]
